FAERS Safety Report 6721883-6 (Version None)
Quarter: 2010Q2

REPORT INFORMATION
  Report Type: 
  Country: None (occurrence: None)
  Receive Date: 20100512
  Receipt Date: 20100430
  Transmission Date: 20101027
  Serious: Yes (Hospitalization)
  Sender: FDA-Public Use
  Company Number: PHHY2010FR06893

PATIENT
  Sex: Female
  Weight: 56 kg

DRUGS (3)
  1. FEMARA [Suspect]
     Indication: BREAST CANCER
     Dosage: 2.5 MG, UNK
     Dates: start: 20050801
  2. METFORMIN HCL [Concomitant]
     Indication: DIABETES MELLITUS
     Dosage: 850 MG, TID
     Route: 048
  3. FIXICAL [Concomitant]
     Indication: OSTEOPENIA
     Dosage: UNK
     Route: 048

REACTIONS (4)
  - CLEAR CELL ENDOMETRIAL CARCINOMA [None]
  - ENDOMETRIAL CANCER METASTATIC [None]
  - METASTASES TO PERITONEUM [None]
  - METRORRHAGIA [None]
